FAERS Safety Report 5748371-8 (Version None)
Quarter: 2008Q2

REPORT INFORMATION
  Report Type: 
  Country: None (occurrence: None)
  Receive Date: 20080520
  Receipt Date: 20080506
  Transmission Date: 20081010
  Serious: Yes (Hospitalization)
  Sender: FDA-Public Use
  Company Number: 190001L08THA

PATIENT
  Age: 34 Year
  Sex: Female
  Weight: 54.1 kg

DRUGS (4)
  1. MENOTROPHIN (MENOTROPHIN) [Suspect]
     Indication: GAMETE INTRAFALLOPIAN TRANSFER
  2. CHORIONIC GONADTROPIN [Suspect]
     Indication: GAMETE INTRAFALLOPIAN TRANSFER
     Dosage: 10000 IU, INTRAMUSCULAR; 1500 IU, 1 IN 3 DAYS; INTRAMUSCULAR
     Route: 030
  3. CHORIONIC GONADTROPIN [Suspect]
     Indication: INFERTILITY
     Dosage: 10000 IU, INTRAMUSCULAR; 1500 IU, 1 IN 3 DAYS; INTRAMUSCULAR
     Route: 030
  4. GONALDOTROPIN-RELEASING HORMONE AGONIST (GONADOTROPIN-RELEASING HORMON [Concomitant]

REACTIONS (5)
  - ARTERIAL THROMBOSIS [None]
  - BLOOD ALBUMIN DECREASED [None]
  - HYPONATRAEMIA [None]
  - OVARIAN HYPERSTIMULATION SYNDROME [None]
  - PROTEIN TOTAL DECREASED [None]
